FAERS Safety Report 10677724 (Version 1)
Quarter: 2014Q4

REPORT INFORMATION
  Report Type: Spontaneous
  Country: US (occurrence: US)
  Receive Date: 20141229
  Receipt Date: 20141229
  Transmission Date: 20150529
  Serious: No
  Sender: FDA-Public Use
  Company Number: US-LUNDBECK-DKLU1106299

PATIENT
  Age: 18 Year
  Sex: Female

DRUGS (3)
  1. SABRIL [Suspect]
     Active Substance: VIGABATRIN
     Indication: ENCEPHALOPATHY
  2. SABRIL [Suspect]
     Active Substance: VIGABATRIN
     Indication: TEMPORAL LOBE EPILEPSY
     Route: 048
     Dates: end: 20141117
  3. SABRIL [Suspect]
     Active Substance: VIGABATRIN
     Indication: EPILEPSY

REACTIONS (1)
  - Drug ineffective [Unknown]

NARRATIVE: CASE EVENT DATE: 20141117
